FAERS Safety Report 20577725 (Version 2)
Quarter: 2022Q3

REPORT INFORMATION
  Report Type: Spontaneous
  Country: US (occurrence: US)
  Receive Date: 20220310
  Receipt Date: 20220812
  Transmission Date: 20221027
  Serious: Yes (Other)
  Sender: FDA-Public Use
  Company Number: US-SA-SAC20220309000340

PATIENT
  Age: 54 Year
  Sex: Male

DRUGS (1)
  1. ZANTAC [Suspect]
     Active Substance: RANITIDINE HYDROCHLORIDE
     Dosage: 25 MG,FREQUENCY:OCCASSIONAL
     Route: 065
     Dates: start: 199801, end: 200701

REACTIONS (1)
  - Small intestine carcinoma [Unknown]

NARRATIVE: CASE EVENT DATE: 20060301
